FAERS Safety Report 8462078 (Version 13)
Quarter: 2012Q4

REPORT INFORMATION
  Report Type: 
  Country: US (occurrence: US)
  Receive Date: 20120315
  Receipt Date: 20121109
  Transmission Date: 20130627
  Serious: Yes (Death, Hospitalization, Other)
  Sender: FDA-Public Use
  Company Number: US-ASTRAZENECA-2011SE41545

PATIENT
  Age: 61 Year
  Sex: Female

DRUGS (98)
  1. NEXIUM [Suspect]
     Indication: GASTROOESOPHAGEAL REFLUX DISEASE
     Route: 048
  2. NEXIUM [Suspect]
     Indication: ABDOMINAL PAIN UPPER
     Route: 048
  3. NEXIUM [Suspect]
     Indication: GASTROOESOPHAGEAL REFLUX DISEASE
     Route: 048
     Dates: start: 20021220
  4. NEXIUM [Suspect]
     Indication: ABDOMINAL PAIN UPPER
     Route: 048
     Dates: start: 20021220
  5. NEXIUM [Suspect]
     Indication: GASTROOESOPHAGEAL REFLUX DISEASE
     Route: 048
     Dates: start: 200305, end: 200904
  6. NEXIUM [Suspect]
     Indication: ABDOMINAL PAIN UPPER
     Route: 048
     Dates: start: 200305, end: 200904
  7. NEXIUM [Suspect]
     Indication: GASTROOESOPHAGEAL REFLUX DISEASE
     Route: 048
     Dates: start: 20030522
  8. NEXIUM [Suspect]
     Indication: ABDOMINAL PAIN UPPER
     Route: 048
     Dates: start: 20030522
  9. NEXIUM [Suspect]
     Indication: GASTROOESOPHAGEAL REFLUX DISEASE
     Route: 048
     Dates: start: 20060104
  10. NEXIUM [Suspect]
     Indication: ABDOMINAL PAIN UPPER
     Route: 048
     Dates: start: 20060104
  11. RANITIDINE [Concomitant]
     Dates: start: 200904, end: 201109
  12. HYZAAR [Concomitant]
     Dosage: 50-12.5MG
     Dates: start: 20030423
  13. HYZAAR [Concomitant]
     Dosage: 50 / 12.5 mg QD
     Dates: start: 20060104
  14. POTASSIUM CL [Concomitant]
  15. ALPRAZOLAM/XANAX [Concomitant]
     Dates: start: 19990105
  16. ALPRAZOLAM/XANAX [Concomitant]
  17. ALPRAZOLAM/XANAX [Concomitant]
     Dates: start: 20030620
  18. ALPRAZOLAM/XANAX [Concomitant]
     Dosage: 0.5 MG 1/2 PRN
     Dates: start: 20070119
  19. ALPRAZOLAM/XANAX [Concomitant]
     Dosage: 5MG 1/2 TAB QPM
     Route: 048
     Dates: start: 20060104
  20. RAZADYNE [Concomitant]
     Indication: MEMORY IMPAIRMENT
  21. RAZADYNE [Concomitant]
     Indication: MEMORY IMPAIRMENT
     Dates: start: 20060104
  22. ALLOPREERINOL [Concomitant]
     Indication: GOUT
  23. LYRICA [Concomitant]
  24. LUSPIRONE HCL [Concomitant]
  25. LOOASTATIN [Concomitant]
  26. PLAVIX/CLOPIDOGREL [Concomitant]
     Indication: CARDIAC DISORDER
     Dosage: 1 PO Q DAY
     Route: 048
  27. PLAVIX/CLOPIDOGREL [Concomitant]
     Indication: APOLIPOPROTEIN ABNORMAL
     Dosage: 1 PO Q DAY
     Route: 048
  28. PLAVIX/CLOPIDOGREL [Concomitant]
     Indication: CARDIAC DISORDER
     Dates: start: 20020102
  29. PLAVIX/CLOPIDOGREL [Concomitant]
     Indication: APOLIPOPROTEIN ABNORMAL
     Dates: start: 20020102
  30. CARISOPRODOL [Concomitant]
  31. CARISOPRODOL [Concomitant]
     Dates: start: 20030620
  32. GLIMEPIRIDE/AMARYL [Concomitant]
     Dates: start: 20061129
  33. ISOSORBIDE MN/MONOKET [Concomitant]
  34. ISOSORBIDE MN/MONOKET [Concomitant]
     Route: 048
     Dates: start: 19961113
  35. EUISTA [Concomitant]
     Indication: MENOPAUSE
  36. NITROQUICK [Concomitant]
     Indication: CARDIAC DISORDER
     Dates: start: 20030520
  37. NITROQUICK [Concomitant]
     Indication: CARDIAC DISORDER
     Dosage: 0.4 MG PRN
     Dates: start: 20070119
  38. AMBIEN [Concomitant]
     Indication: SLEEP DISORDER
  39. FLUTICASONE [Concomitant]
     Dosage: 50 MCG
  40. PREDNISONE [Concomitant]
  41. CEFPROZIL [Concomitant]
  42. SPIRIUA [Concomitant]
     Dosage: 18 mcg
  43. AZITHORMYCIN [Concomitant]
  44. WARFARIN SODIUM [Concomitant]
  45. FUROSEMIDE [Concomitant]
     Dates: start: 20110818
  46. ENALAPRIL MALEATE [Concomitant]
  47. CEFADROXIL [Concomitant]
     Dates: start: 19990305
  48. AMIODARONE HCL [Concomitant]
  49. DIOUAN [Concomitant]
  50. PRAUASTATIN SODIUM [Concomitant]
  51. CORG [Concomitant]
  52. SPIRONOLACTON/ALDACTONE [Concomitant]
     Dates: start: 20021220
  53. SPIRONOLACTON/ALDACTONE [Concomitant]
     Dates: start: 20030423
  54. TEMAZEPAM [Concomitant]
  55. COZZAAR [Concomitant]
  56. AMITRIPTYLINE HCL [Concomitant]
  57. ALTACE [Concomitant]
  58. PROMETHAZINE [Concomitant]
  59. HYDROCOONE/APAP [Concomitant]
     Indication: PAIN
     Dosage: 7.5/750
  60. CLINDAMYCIN HCL [Concomitant]
  61. LEVAQUIN [Concomitant]
     Dates: start: 20030606
  62. CELEBREX [Concomitant]
     Dates: start: 20030618
  63. AVANDIA [Concomitant]
     Dates: start: 20030620
  64. ALLEGRA [Concomitant]
     Dates: start: 20110112
  65. ASPIRIN/ASA/BUFFERED ASPIRIN [Concomitant]
     Route: 048
     Dates: start: 19961113
  66. ASPIRIN/ASA/BUFFERED ASPIRIN [Concomitant]
     Dates: start: 20060104
  67. ASPIRIN/ASA/BUFFERED ASPIRIN [Concomitant]
     Dates: start: 20070119
  68. AVAPRO [Concomitant]
     Dates: start: 20110112
  69. COREG [Concomitant]
     Dates: start: 20110112
  70. TORSEMIDE [Concomitant]
     Dates: start: 20070119
  71. ZOCOR [Concomitant]
     Route: 048
     Dates: start: 19961113
  72. ZOCOR [Concomitant]
     Dates: start: 20021220
  73. TOPROL XL [Concomitant]
     Dates: start: 20060104
  74. COLCHICINE [Concomitant]
     Dosage: 0.6 mg PRN
     Dates: start: 20060104
  75. CENTRUM VITAMIN [Concomitant]
     Dates: start: 20070119
  76. ZAROXOLYN [Concomitant]
     Dates: start: 20030424
  77. ZAROXOLYN [Concomitant]
     Dates: start: 20060104
  78. ZAROXOLYN [Concomitant]
     Dosage: 5 MG PRN
     Dates: start: 20070119
  79. ZAROXOLYN [Concomitant]
  80. DEMEDEX [Concomitant]
     Dosage: 2 PO Q AM
     Dates: start: 20060104
  81. NEURONTIN [Concomitant]
     Dates: start: 20060104
  82. UNICEF [Concomitant]
     Dosage: 1 BID
     Route: 048
  83. EVISSA [Concomitant]
  84. CARDIZEM CD [Concomitant]
     Dates: start: 19961113
  85. LOPRESSOR [Concomitant]
     Route: 048
     Dates: start: 19961113
  86. BUMEX [Concomitant]
     Dosage: EVERY DAY
     Dates: start: 19961113
  87. ATORVASTATIN/LIPITOR [Concomitant]
     Dates: start: 19990107
  88. ATORVASTATIN/LIPITOR [Concomitant]
     Dates: start: 20020102
  89. KAYCIEL [Concomitant]
     Dates: start: 20020102
  90. LUNESTA [Concomitant]
     Dates: start: 20021220
  91. ZINAXIN [Concomitant]
     Dates: start: 20021220
  92. PREMARIN [Concomitant]
     Dates: start: 19990305
  93. PREMPRO [Concomitant]
     Dosage: 0.625 MG TO 2.5 MG TAB
     Dates: start: 19990212
  94. ISOSORBIDE DINITRATE [Concomitant]
     Dates: start: 19981007
  95. ACCUPRIL [Concomitant]
     Dates: start: 19981028
  96. TRILISATE [Concomitant]
     Dates: start: 19990112
  97. SMZ/TMP [Concomitant]
     Dosage: 400-80
     Dates: start: 20110818
  98. ZEMPLAR [Concomitant]
     Dosage: 1 MCG
     Dates: start: 20110818

REACTIONS (15)
  - Coronary artery disease [Fatal]
  - Renal failure chronic [Fatal]
  - Type 2 diabetes mellitus [Fatal]
  - Cardiac failure congestive [Fatal]
  - Cardiac arrest [Fatal]
  - Arteriosclerosis coronary artery [Unknown]
  - Subendocardial ischaemia [Unknown]
  - Foot fracture [Unknown]
  - Ischaemic cardiomyopathy [Unknown]
  - Type 1 diabetes mellitus [Unknown]
  - Osteoporosis [Unknown]
  - Rib fracture [Unknown]
  - Multiple fractures [Unknown]
  - Upper limb fracture [Unknown]
  - Diabetic neuropathy [Unknown]
